FAERS Safety Report 19646638 (Version 2)
Quarter: 2021Q4

REPORT INFORMATION
  Report Type: Spontaneous
  Country: US (occurrence: US)
  Receive Date: 20210802
  Receipt Date: 20211203
  Transmission Date: 20220303
  Serious: No
  Sender: FDA-Public Use
  Company Number: US-SA-SAC20210729000631

PATIENT
  Sex: Female

DRUGS (9)
  1. AUBAGIO [Suspect]
     Active Substance: TERIFLUNOMIDE
     Indication: Multiple sclerosis
     Dosage: 7 MG
     Route: 048
  2. TRAMADOL HCL [Concomitant]
     Active Substance: TRAMADOL HYDROCHLORIDE
  3. IRON [Concomitant]
     Active Substance: IRON
  4. VITAMIN D NOS [Concomitant]
     Active Substance: VITAMIN D NOS
  5. MECLIZINE [Concomitant]
     Active Substance: MECLIZINE HYDROCHLORIDE
  6. GABAPENTIN [Concomitant]
     Active Substance: GABAPENTIN
  7. PREDNISOLONE [Concomitant]
     Active Substance: PREDNISOLONE
  8. KESIMPTA [Concomitant]
     Active Substance: OFATUMUMAB
     Dosage: UNK
  9. VITAMIN D2 [Concomitant]
     Active Substance: ERGOCALCIFEROL

REACTIONS (12)
  - Vertigo [Recovering/Resolving]
  - Retching [Unknown]
  - Influenza like illness [Recovered/Resolved]
  - Feeling abnormal [Unknown]
  - Swelling [Unknown]
  - Hypersensitivity [Unknown]
  - Rash [Recovered/Resolved]
  - Nausea [Unknown]
  - Gastroenteritis viral [Unknown]
  - Headache [Unknown]
  - Hypoaesthesia [Recovering/Resolving]
  - Paraesthesia [Recovering/Resolving]
